FAERS Safety Report 7909978-2 (Version None)
Quarter: 2011Q4

REPORT INFORMATION
  Report Type: 
  Country: None (occurrence: None)
  Receive Date: 20111111
  Receipt Date: 20111107
  Transmission Date: 20120403
  Serious: Yes (Other)
  Sender: FDA-Public Use
  Company Number: US-JNJFOC-20110303014

PATIENT

DRUGS (1)
  1. LEVAQUIN [Suspect]
     Indication: KIDNEY INFECTION
     Route: 048

REACTIONS (3)
  - TENDON INJURY [None]
  - DEEP VEIN THROMBOSIS [None]
  - TENDON RUPTURE [None]
